FAERS Safety Report 5765417-1 (Version None)
Quarter: 2008Q2

REPORT INFORMATION
  Report Type: 
  Country: None (occurrence: None)
  Receive Date: 20080611
  Receipt Date: 20080610
  Transmission Date: 20081010
  Serious: Yes (Other)
  Sender: FDA-Public Use
  Company Number: A0729687A

PATIENT
  Sex: Male

DRUGS (6)
  1. NICODERM [Suspect]
     Indication: SMOKING CESSATION THERAPY
     Dosage: 1PAT PER DAY
     Route: 062
     Dates: start: 20080508, end: 20080509
  2. CLONAZEPAM [Suspect]
     Indication: DRUG USE FOR UNKNOWN INDICATION
     Route: 048
  3. ANTI-EPILEPTIC DRUGS [Concomitant]
  4. DILANTIN [Concomitant]
     Route: 048
  5. TEGRETOL [Concomitant]
     Route: 048
  6. PRIMIDONE [Concomitant]
     Route: 048

REACTIONS (4)
  - CONVULSION [None]
  - DRUG INTERACTION [None]
  - MUSCLE TWITCHING [None]
  - TREMOR [None]
